FAERS Safety Report 6060984-5 (Version None)
Quarter: 2009Q1

REPORT INFORMATION
  Report Type: 
  Country: None (occurrence: None)
  Receive Date: 20090202
  Receipt Date: 20090122
  Transmission Date: 20090719
  Serious: No
  Sender: FDA-Public Use
  Company Number: US-JNJFOC-20090106278

PATIENT
  Sex: Female
  Weight: 58.97 kg

DRUGS (5)
  1. DURAGESIC-100 [Suspect]
     Indication: ARTHRALGIA
     Route: 062
  2. ALPRAZOLAM [Concomitant]
     Indication: NEUROPATHY PERIPHERAL
     Route: 048
  3. CYMBALTA [Concomitant]
     Indication: DEPRESSION
     Route: 048
  4. PERCOCET [Concomitant]
     Indication: PAIN
     Route: 048
  5. AMITRIPTYLINE [Concomitant]
     Indication: SLEEP DISORDER
     Route: 048

REACTIONS (1)
  - WRONG TECHNIQUE IN DRUG USAGE PROCESS [None]
